FAERS Safety Report 7538013-3 (Version None)
Quarter: 2011Q2

REPORT INFORMATION
  Report Type: 
  Country: None (occurrence: None)
  Receive Date: 20110609
  Receipt Date: 20110606
  Transmission Date: 20111010
  Serious: Yes (Other)
  Sender: FDA-Public Use
  Company Number: AT-PFIZER INC-2011121874

PATIENT
  Age: 20 Year
  Sex: Female

DRUGS (2)
  1. DOSTINEX [Suspect]
     Indication: METRORRHAGIA
     Dosage: UNK
     Dates: start: 20110101
  2. DOSTINEX [Suspect]
     Indication: HYPERPROLACTINAEMIA

REACTIONS (2)
  - PALPITATIONS [None]
  - BLOOD PRESSURE FLUCTUATION [None]
